FAERS Safety Report 24970172 (Version 1)
Quarter: 2025Q1

REPORT INFORMATION
  Report Type: Spontaneous
  Country: FR (occurrence: FR)
  Receive Date: 20250214
  Receipt Date: 20250214
  Transmission Date: 20250409
  Serious: Yes (Other)
  Sender: TEVA
  Company Number: None

PATIENT
  Age: 0 Day
  Sex: Female
  Weight: 2.78 kg

DRUGS (3)
  1. BISOPROLOL [Suspect]
     Active Substance: BISOPROLOL
     Indication: Hypertrophic cardiomyopathy
     Route: 048
     Dates: start: 20221222, end: 20230314
  2. BISOPROLOL [Suspect]
     Active Substance: BISOPROLOL
     Indication: Hypertrophic cardiomyopathy
     Dosage: BISOPROLOL (ACID FUMARATE)
     Route: 048
     Dates: start: 20221010, end: 202212
  3. TAMIFLU [Concomitant]
     Active Substance: OSELTAMIVIR PHOSPHATE
     Indication: Influenza
     Dosage: 75 MG X2/DAY
     Route: 048
     Dates: start: 20221221, end: 20221226

REACTIONS (4)
  - Foetal growth restriction [Recovered/Resolved]
  - Term birth [Recovered/Resolved]
  - Normal newborn [Recovered/Resolved]
  - Maternal exposure during pregnancy [Recovered/Resolved]

NARRATIVE: CASE EVENT DATE: 20230314
